FAERS Safety Report 8440204-4 (Version None)
Quarter: 2012Q2

REPORT INFORMATION
  Report Type: 
  Country: None (occurrence: None)
  Receive Date: 20120615
  Receipt Date: 20120613
  Transmission Date: 20120825
  Serious: Yes (Other)
  Sender: FDA-Public Use
  Company Number: FR-ROCHE-1075699

PATIENT
  Age: 66 Year
  Sex: Female
  Weight: 50 kg

DRUGS (5)
  1. COPEGUS [Suspect]
     Indication: HEPATITIS C
     Route: 048
     Dates: start: 20111026
  2. ASPIRIN [Concomitant]
     Route: 046
     Dates: start: 20111105
  3. NOCERTONE [Concomitant]
     Indication: HEADACHE
     Route: 048
  4. NEORECORMON [Concomitant]
  5. PEGASYS [Suspect]
     Indication: HEPATITIS C
     Route: 058
     Dates: start: 20111026

REACTIONS (5)
  - CEREBROVASCULAR ACCIDENT [None]
  - PARKINSONISM [None]
  - FATIGUE [None]
  - ANAEMIA [None]
  - DECREASED APPETITE [None]
